FAERS Safety Report 17889142 (Version 1)
Quarter: 2020Q2

REPORT INFORMATION
  Report Type: Spontaneous
  Country: US (occurrence: US)
  Receive Date: 20200612
  Receipt Date: 20200612
  Transmission Date: 20200714
  Serious: Yes (Death)
  Sender: FDA-Public Use
  Company Number: US-BAYER-2020-105045

PATIENT
  Sex: Male

DRUGS (1)
  1. CORICIDIN HBP COUGH AND COLD [Suspect]
     Active Substance: CHLORPHENIRAMINE MALEATE\DEXTROMETHORPHAN HYDROBROMIDE
     Dosage: UNK
     Route: 048

REACTIONS (2)
  - Death [Fatal]
  - Overdose [None]
